FAERS Safety Report 4788524-9 (Version None)
Quarter: 2005Q4

REPORT INFORMATION
  Report Type: 
  Country: None (occurrence: None)
  Receive Date: 20051005
  Receipt Date: 20051005
  Transmission Date: 20060501
  Serious: Yes (Hospitalization)
  Sender: FDA-Public Use
  Company Number: None

PATIENT
  Age: 63 Year
  Sex: Male

DRUGS (6)
  1. WARFARIN 3 MG [Suspect]
     Indication: ANTICOAGULANT THERAPY
     Dosage: 3 MG PO QD
     Route: 048
     Dates: start: 20050220, end: 20050304
  2. ASPIRIN [Concomitant]
     Dosage: 81 MG PO QD [}6 MONTHS]
     Route: 048
  3. AMIODARONE [Concomitant]
  4. ENALAPRIL [Concomitant]
  5. FUROSEMIDE [Concomitant]
  6. METOPROLOL [Concomitant]

REACTIONS (1)
  - MELAENA [None]
